FAERS Safety Report 16108580 (Version 1)
Quarter: 2019Q1

REPORT INFORMATION
  Report Type: Other
  Country: ES (occurrence: ES)
  Receive Date: 20190323
  Receipt Date: 20190323
  Transmission Date: 20190418
  Serious: Yes (Hospitalization, Other)
  Sender: FDA-Public Use
  Company Number: ES-APOTEX-2019AP009710

PATIENT
  Age: 82 Year
  Sex: Female

DRUGS (8)
  1. QUETIAPINE. [Suspect]
     Active Substance: QUETIAPINE
     Indication: PRODUCT USED FOR UNKNOWN INDICATION
     Dosage: 25 MG, Q.H.S(0-0-1 CURSO CL?NICO CEX SALUD MENTAL 09/01/2019: PAUTO QUETIAPINA 25-50MG AL ACOSTARSE)
     Route: 048
     Dates: start: 20190109
  2. DORMICUM                           /00036201/ [Concomitant]
     Active Substance: NITRAZEPAM
     Indication: PRODUCT USED FOR UNKNOWN INDICATION
     Dosage: 7.5 MG, Q.H.S (0-0-1)
     Route: 048
  3. LORAZEPAM. [Concomitant]
     Active Substance: LORAZEPAM
     Indication: PRODUCT USED FOR UNKNOWN INDICATION
     Dosage: 1 MG, Q.12H (1-0-1)
     Route: 048
  4. OMEPRAZOL                          /00661201/ [Concomitant]
     Active Substance: OMEPRAZOLE
     Indication: PRODUCT USED FOR UNKNOWN INDICATION
     Dosage: 40 MG, Q.12H (1-0-1)
     Route: 048
  5. MANIDON [Interacting]
     Active Substance: VERAPAMIL HYDROCHLORIDE
     Indication: ATRIAL FIBRILLATION
     Dosage: 80 MG, QD (1/24 H)
     Route: 048
     Dates: start: 20121002, end: 20190208
  6. SERTRALINA                         /01011401/ [Concomitant]
     Active Substance: SERTRALINE HYDROCHLORIDE
     Indication: PRODUCT USED FOR UNKNOWN INDICATION
     Dosage: 100 MG, Q.AM (1-0-0)
     Route: 048
  7. DONEPEZIL. [Interacting]
     Active Substance: DONEPEZIL
     Indication: COGNITIVE DISORDER
     Dosage: 1 DF, QD (1/24 H. CEX NEUROLOG?A 02/08/2018 LE PAUTA 5 MG UN COMPRIMIDO ANTES DE ACOSTARSE DURANTE )
     Route: 048
     Dates: start: 201808, end: 20190214
  8. SINTROM [Concomitant]
     Active Substance: ACENOCOUMAROL
     Indication: PRODUCT USED FOR UNKNOWN INDICATION
     Dosage: UNK
     Route: 048

REACTIONS (3)
  - Syncope [Recovered/Resolved]
  - Atrial fibrillation [Recovered/Resolved]
  - Bradycardia [Recovered/Resolved]

NARRATIVE: CASE EVENT DATE: 20190208
